FAERS Safety Report 5867152-8 (Version None)
Quarter: 2008Q3

REPORT INFORMATION
  Report Type: 
  Country: None (occurrence: None)
  Receive Date: 20080902
  Receipt Date: 20080827
  Transmission Date: 20090109
  Serious: Yes (Death)
  Sender: FDA-Public Use
  Company Number: JP-EISAI MEDICAL RESEARCH-E2020-03283-SPO-JP

PATIENT
  Age: 84 Year
  Sex: Male

DRUGS (9)
  1. ARICEPT [Suspect]
     Indication: DRUG USE FOR UNKNOWN INDICATION
     Route: 048
  2. ARICEPT [Suspect]
     Route: 048
  3. ARTIST [Concomitant]
     Route: 048
     Dates: end: 20080803
  4. RENIVACE [Concomitant]
     Route: 048
  5. SPIRIVA (TIOTROPIUM BROMIDE HYDRATE) [Concomitant]
     Route: 048
  6. THEO-DUR [Concomitant]
     Route: 048
  7. MUCODYNE [Concomitant]
     Route: 048
  8. ALDACTONE [Concomitant]
     Route: 048
  9. UNKNOWN DRUG (EXPECTORANT) [Concomitant]

REACTIONS (2)
  - ATRIOVENTRICULAR BLOCK [None]
  - RENAL FAILURE ACUTE [None]
